FAERS Safety Report 19941260 (Version 1)
Quarter: 2021Q4

REPORT INFORMATION
  Report Type: Spontaneous
  Country: FR (occurrence: FR)
  Receive Date: 20211011
  Receipt Date: 20211011
  Transmission Date: 20220303
  Serious: Yes (Hospitalization, Disabling)
  Sender: FDA-Public Use
  Company Number: None

PATIENT
  Age: 25 Year
  Sex: Male
  Weight: 72 kg

DRUGS (15)
  1. ARIPIPRAZOLE [Suspect]
     Active Substance: ARIPIPRAZOLE
     Indication: Schizophrenia
     Dosage: 15 MILLIGRAM, QD
     Dates: start: 20210408, end: 20210419
  2. HALDOL [Suspect]
     Active Substance: HALOPERIDOL
     Indication: Schizophrenia
     Dosage: 20 MILLIGRAM, QD (BUCCAL TABLET)
     Route: 048
     Dates: start: 20210507, end: 20210601
  3. HALDOL DECANOATE [Suspect]
     Active Substance: HALOPERIDOL DECANOATE
     Indication: Schizophrenia
     Dosage: 250 MILLIGRAM, MONTHLY, START DATE: 26-MAY-2021
     Route: 030
     Dates: end: 20210526
  4. ABILIFY MAINTENA [Suspect]
     Active Substance: ARIPIPRAZOLE
     Indication: Schizophrenia
     Dosage: 400 MILLIGRAM, MONTHLY
     Route: 030
     Dates: start: 20210413, end: 20210413
  5. CYAMEMAZINE [Suspect]
     Active Substance: CYAMEMAZINE
     Indication: Schizophrenia
     Dosage: 200 GTT DROPS, QD
     Route: 048
     Dates: start: 20210423, end: 20210423
  6. CYAMEMAZINE [Suspect]
     Active Substance: CYAMEMAZINE
     Dosage: 250 GTT DROPS, QD
     Route: 048
     Dates: start: 20210424, end: 20210514
  7. CYAMEMAZINE [Suspect]
     Active Substance: CYAMEMAZINE
     Dosage: 200 GTT DROPS, QD
     Route: 048
     Dates: start: 20210514, end: 20210519
  8. CYAMEMAZINE [Suspect]
     Active Substance: CYAMEMAZINE
     Dosage: 175 GTT DROPS, QD
     Route: 048
     Dates: start: 20210519, end: 20210525
  9. CYAMEMAZINE [Suspect]
     Active Substance: CYAMEMAZINE
     Dosage: 150 GTT DROPS, QD
     Route: 048
     Dates: start: 20210525, end: 20210531
  10. CYAMEMAZINE [Suspect]
     Active Substance: CYAMEMAZINE
     Dosage: 90 GTT DROPS, QD
     Route: 048
     Dates: start: 20210531, end: 20210603
  11. CYAMEMAZINE [Suspect]
     Active Substance: CYAMEMAZINE
     Dosage: 45 GTT DROPS, QD
     Route: 048
     Dates: start: 20210603, end: 20210605
  12. LOXAPINE SUCCINATE [Concomitant]
     Active Substance: LOXAPINE SUCCINATE
     Indication: Schizophrenia
     Dosage: 100 GTT DROPS, QD
     Route: 030
     Dates: start: 20210408
  13. RISPERIDONE [Concomitant]
     Active Substance: RISPERIDONE
     Indication: Schizophrenia
     Dosage: 4 MILLIGRAM, QD
     Route: 048
     Dates: start: 20210419, end: 20210423
  14. RISPERIDONE [Concomitant]
     Active Substance: RISPERIDONE
     Dosage: 6 MILLIGRAM, QD
     Route: 048
     Dates: start: 20210423, end: 20210507
  15. LOXAPINE [Concomitant]
     Active Substance: LOXAPINE
     Indication: Schizophrenia
     Dosage: 100 MILLIGRAM, QD
     Route: 030
     Dates: start: 20210419

REACTIONS (1)
  - Hepatic cytolysis [Recovered/Resolved]

NARRATIVE: CASE EVENT DATE: 20210525
